FAERS Safety Report 6633999-3 (Version None)
Quarter: 2010Q1

REPORT INFORMATION
  Report Type: 
  Country: None (occurrence: None)
  Receive Date: 20100310
  Receipt Date: 20100225
  Transmission Date: 20100710
  Serious: Yes (Hospitalization)
  Sender: FDA-Public Use
  Company Number: 2010AL001278

PATIENT
  Age: 45 Year
  Sex: Female

DRUGS (2)
  1. RAMIPRIL [Suspect]
     Indication: HYPERTENSION
     Dosage: 5 MG;QD;PO
     Route: 048
     Dates: start: 20090730, end: 20100217
  2. NASONEX [Concomitant]

REACTIONS (5)
  - DISCOMFORT [None]
  - GASTROENTERITIS [None]
  - NEPHROTIC SYNDROME [None]
  - NOSOCOMIAL INFECTION [None]
  - WEIGHT INCREASED [None]
